FAERS Safety Report 25588619 (Version 2)
Quarter: 2025Q3

REPORT INFORMATION
  Report Type: Spontaneous
  Country: US (occurrence: US)
  Receive Date: 20250722
  Receipt Date: 20250729
  Transmission Date: 20251020
  Serious: No
  Sender: ROCHE
  Company Number: US-ROCHE-10000338757

PATIENT
  Age: 22 Year
  Sex: Female
  Weight: 74.84 kg

DRUGS (8)
  1. XOLAIR PFS [Suspect]
     Active Substance: OMALIZUMAB
     Indication: Idiopathic urticaria
     Dosage: ON DEC-2022, A SUBSEQUENT DOSE WAS RECEIVED.?STRENGTH: 300MG/2ML
     Route: 058
     Dates: start: 2021
  2. XOLAIR PFS [Suspect]
     Active Substance: OMALIZUMAB
  3. HYDROXYZINE [Concomitant]
     Active Substance: HYDROXYZINE HYDROCHLORIDE
     Indication: Mast cell activation syndrome
     Route: 048
  4. FAMOTIDINE [Concomitant]
     Active Substance: FAMOTIDINE
     Indication: Mast cell activation syndrome
     Route: 048
  5. DULOXETINE [Concomitant]
     Active Substance: DULOXETINE
     Dosage: 30 MG IN THE MORNING
     Route: 048
  6. DULOXETINE [Concomitant]
     Active Substance: DULOXETINE
     Dosage: 60MG AT NIGHT
     Route: 048
  7. CLONIDINE [Concomitant]
     Active Substance: CLONIDINE
     Dosage: AT NIGHT
     Route: 048
  8. DROSPIRENONE [Concomitant]
     Active Substance: DROSPIRENONE
     Indication: Contraception
     Route: 048
     Dates: start: 2025

REACTIONS (5)
  - Dizziness [Recovered/Resolved]
  - Product dose omission issue [Unknown]
  - Wrong technique in product usage process [Unknown]
  - Device malfunction [Unknown]
  - Loss of consciousness [Unknown]

NARRATIVE: CASE EVENT DATE: 20250711
